FAERS Safety Report 9509189 (Version 1)
Quarter: 2013Q3

REPORT INFORMATION
  Report Type: Spontaneous
  Country: US (occurrence: US)
  Receive Date: 20130909
  Receipt Date: 20130909
  Transmission Date: 20140515
  Serious: No
  Sender: FDA-Public Use
  Company Number: US-BRISTOL-MYERS SQUIBB COMPANY-19022300

PATIENT
  Age: 66 Year
  Sex: Male

DRUGS (4)
  1. ABILIFY [Suspect]
     Indication: DEPRESSION
  2. PROZAC [Concomitant]
     Indication: MENTAL DISORDER
     Dosage: 1DF:40MG WITH ABILIFY OR 60 MG WITHOUT ABILIFY
  3. PROZAC [Concomitant]
     Indication: DEPRESSION
     Dosage: 1DF:40MG WITH ABILIFY OR 60 MG WITHOUT ABILIFY
  4. TAMSULOSIN [Concomitant]

REACTIONS (3)
  - Depression [None]
  - Anxiety [None]
  - Back pain [None]
